FAERS Safety Report 4575973-7 (Version None)
Quarter: 2005Q1

REPORT INFORMATION
  Report Type: 
  Country: None (occurrence: None)
  Receive Date: 20050209
  Receipt Date: 20041206
  Transmission Date: 20050727
  Serious: Yes (Hospitalization)
  Sender: FDA-Public Use
  Company Number: DE-SANOFI-SYNTHELABO-F01200403848

PATIENT
  Sex: Female

DRUGS (7)
  1. CAPECITABINE [Suspect]
     Dosage: 1500 MG TWICE A DAY PER ORAL FROM D1 TO D15, Q3W
     Route: 048
     Dates: start: 20041103, end: 20041117
  2. CAPECITABINE [Suspect]
     Dosage: 1500 MG TWICE A DAY PER ORAL FROM D1 TO D15, Q3W
     Route: 048
     Dates: start: 20041208
  3. OXALIPLATIN [Suspect]
     Indication: COLON CANCER STAGE III
     Route: 042
     Dates: start: 20041103, end: 20041103
  4. OXALIPLATIN [Suspect]
     Route: 042
     Dates: start: 20041208, end: 20041208
  5. UNKNOWN MEDICATION [Concomitant]
     Dosage: UNK
     Route: 065
     Dates: start: 20041103
  6. FOLIC ACID [Concomitant]
     Dosage: UNK
     Route: 065
     Dates: start: 20041103, end: 20041120
  7. BELOC ZOK MITE [Concomitant]
     Dosage: UNK
     Route: 065
     Dates: start: 20040915

REACTIONS (5)
  - ABDOMINAL PAIN [None]
  - DIARRHOEA [None]
  - NAUSEA [None]
  - THROMBOSIS [None]
  - VOMITING [None]
